FAERS Safety Report 22287369 (Version 4)
Quarter: 2024Q1

REPORT INFORMATION
  Report Type: Report from Study
  Country: KR (occurrence: KR)
  Receive Date: 20230505
  Receipt Date: 20240312
  Transmission Date: 20240410
  Serious: Yes (Other)
  Sender: FDA-Public Use
  Company Number: KR-002147023-NVSC2022KR289030

PATIENT
  Age: 58 Year
  Sex: Female

DRUGS (10)
  1. PIQRAY [Suspect]
     Active Substance: ALPELISIB
     Indication: Hormone receptor positive HER2 negative breast cancer
     Dosage: 300 MG, QD
     Route: 048
     Dates: start: 20220926, end: 20230324
  2. PIQRAY [Suspect]
     Active Substance: ALPELISIB
     Dosage: 250 MG, QD
     Route: 048
     Dates: start: 20230410
  3. URSODIOL [Concomitant]
     Active Substance: URSODIOL
     Indication: Prophylaxis
     Dosage: 1 DOSAGE FORM, QD
     Route: 048
     Dates: start: 20220923
  4. PHAZYME [Concomitant]
     Active Substance: DIMETHICONE 410
     Indication: Prophylaxis
     Dosage: 1 DOSAGE FORM, TID
     Route: 048
     Dates: start: 20220923, end: 20221010
  5. HYDROCORTISONE [Concomitant]
     Active Substance: HYDROCORTISONE
     Indication: Fanconi syndrome
     Dosage: 1 DOSAGE FORM, QD
     Route: 048
     Dates: start: 20220923, end: 20220926
  6. HYDROCORTISONE [Concomitant]
     Active Substance: HYDROCORTISONE
     Dosage: 0.5 DOSAGE FORM, QD
     Route: 048
     Dates: start: 20220923, end: 20221010
  7. ZOMETA [Concomitant]
     Active Substance: ZOLEDRONIC ACID
     Indication: Bone cancer metastatic
     Dosage: 1 PACK, Q3MO
     Route: 042
     Dates: start: 20180402, end: 20221219
  8. FASLODEX [Concomitant]
     Active Substance: FULVESTRANT
     Indication: Hormone receptor positive HER2 negative breast cancer
     Dosage: 500 MG, Q1M
     Route: 030
     Dates: start: 20220926
  9. COLCHICINE [Concomitant]
     Active Substance: COLCHICINE
     Indication: Pericardial effusion
     Dosage: 0.6 MG, BID
     Route: 048
     Dates: start: 20220906, end: 20221206
  10. CALCIUM CARBONATE\CHOLECALCIFEROL [Concomitant]
     Active Substance: CALCIUM CARBONATE\CHOLECALCIFEROL
     Indication: Hormone receptor positive HER2 negative breast cancer
     Dosage: 1 DOSAGE FORM, QD
     Route: 048
     Dates: start: 20191202

REACTIONS (5)
  - Diabetes mellitus [Recovering/Resolving]
  - Flank pain [Recovered/Resolved]
  - Erythema nodosum [Not Recovered/Not Resolved]
  - Rash [Recovered/Resolved]
  - Decreased appetite [Recovered/Resolved]

NARRATIVE: CASE EVENT DATE: 20221005
